FAERS Safety Report 20621519 (Version 1)
Quarter: 2022Q1

REPORT INFORMATION
  Report Type: Spontaneous
  Country: US (occurrence: US)
  Receive Date: 20220322
  Receipt Date: 20220322
  Transmission Date: 20220423
  Serious: No
  Sender: FDA-Public Use
  Company Number: US-ALLERGAN-2123495US

PATIENT
  Sex: Female

DRUGS (4)
  1. LUMIGAN [Suspect]
     Active Substance: BIMATOPROST
     Indication: Glaucoma
     Dosage: 2 GTT, QPM
     Route: 047
  2. SYSTANE PF [Concomitant]
     Active Substance: POLYETHYLENE GLYCOL 400\PROPYLENE GLYCOL
     Indication: Hypersensitivity
     Route: 047
  3. NAPHCON-A ALLERGY RELIEF [Concomitant]
     Indication: Hypersensitivity
     Route: 047
  4. TIMOLOL MALEATE [Concomitant]
     Active Substance: TIMOLOL MALEATE
     Indication: Glaucoma
     Dosage: 2 GTT, BID

REACTIONS (3)
  - Eyelash thickening [Not Recovered/Not Resolved]
  - Eyelash changes [Not Recovered/Not Resolved]
  - Blepharal pigmentation [Not Recovered/Not Resolved]
